FAERS Safety Report 4825643-2 (Version None)
Quarter: 2005Q4

REPORT INFORMATION
  Report Type: 
  Country: None (occurrence: None)
  Receive Date: 20051111
  Receipt Date: 20051020
  Transmission Date: 20060501
  Serious: Yes (Hospitalization)
  Sender: FDA-Public Use
  Company Number: FR-ABBOTT-05P-056-0314764-00

PATIENT
  Sex: Female

DRUGS (2)
  1. HUMIRA [Suspect]
     Indication: RHEUMATOID ARTHRITIS
     Route: 058
     Dates: start: 20050927
  2. COLCHICINE [Concomitant]
     Indication: CRYSTAL ARTHROPATHY
     Route: 048
     Dates: start: 20051014, end: 20051025

REACTIONS (1)
  - CRYSTAL ARTHROPATHY [None]
